FAERS Safety Report 21277519 (Version 1)
Quarter: 2022Q3

REPORT INFORMATION
  Report Type: Spontaneous
  Country: US (occurrence: US)
  Receive Date: 20220831
  Receipt Date: 20220831
  Transmission Date: 20221027
  Serious: No
  Sender: FDA-Public Use
  Company Number: US-ABBVIE-22K-163-4315009-00

PATIENT
  Age: 51 Year
  Sex: Female

DRUGS (1)
  1. HUMIRA [Suspect]
     Active Substance: ADALIMUMAB
     Indication: Uveitis
     Route: 058

REACTIONS (7)
  - Incorrect dose administered [Unknown]
  - Mobility decreased [Unknown]
  - Joint swelling [Unknown]
  - Fall [Unknown]
  - Injection site erythema [Unknown]
  - Injection site rash [Unknown]
  - Device issue [Unknown]

NARRATIVE: CASE EVENT DATE: 20220301
